FAERS Safety Report 21210096 (Version 1)
Quarter: 2022Q3

REPORT INFORMATION
  Report Type: Other
  Country: JP (occurrence: JP)
  Receive Date: 20220814
  Receipt Date: 20220814
  Transmission Date: 20221027
  Serious: Yes (Other)
  Sender: FDA-Public Use
  Company Number: JP-CHUGAI-2021032877

PATIENT
  Age: 71 Year
  Sex: Male

DRUGS (1)
  1. ACTEMRA [Suspect]
     Active Substance: TOCILIZUMAB
     Indication: Still^s disease
     Dosage: INJECTION
     Route: 065

REACTIONS (4)
  - Eye inflammation [Unknown]
  - Paradoxical drug reaction [Unknown]
  - Necrotising retinitis [Recovered/Resolved]
  - Peritonitis [Unknown]
